FAERS Safety Report 7576233-2 (Version None)
Quarter: 2011Q2

REPORT INFORMATION
  Report Type: 
  Country: None (occurrence: None)
  Receive Date: 20110623
  Receipt Date: 20110623
  Transmission Date: 20111010
  Serious: No
  Sender: FDA-Public Use
  Company Number: None

PATIENT

DRUGS (1)
  1. AMOXICILLIN [Suspect]
     Dates: start: 20100427, end: 20100511

REACTIONS (6)
  - CHOLELITHIASIS [None]
  - HEPATOMEGALY [None]
  - HEPATOCELLULAR INJURY [None]
  - ANTI-HBS ANTIBODY POSITIVE [None]
  - GALLBLADDER DISORDER [None]
  - ANAEMIA [None]
